FAERS Safety Report 8463144-3 (Version None)
Quarter: 2012Q2

REPORT INFORMATION
  Report Type: 
  Country: None (occurrence: None)
  Receive Date: 20120323
  Receipt Date: 20111027
  Transmission Date: 20120825
  Serious: Yes (Other)
  Sender: FDA-Public Use
  Company Number: 163-21880-11092901

PATIENT
  Age: 69 Year
  Sex: Female
  Weight: 59 kg

DRUGS (6)
  1. CHOLESTYRAMINE (COLESTYRAMINE) [Concomitant]
  2. BYSTOLIC [Concomitant]
  3. CELEXA [Concomitant]
  4. EXJADE [Concomitant]
  5. REVLIMID [Suspect]
     Indication: MYELODYSPLASTIC SYNDROME
     Dosage: 10 MG, AT BEDTIME, PO ; 5 MG
     Route: 048
     Dates: start: 20100614, end: 20110112
  6. REVLIMID [Suspect]
     Indication: MYELODYSPLASTIC SYNDROME
     Dosage: 10 MG, AT BEDTIME, PO ; 5 MG
     Route: 048
     Dates: start: 20110101, end: 20110912

REACTIONS (3)
  - FATIGUE [None]
  - DIARRHOEA [None]
  - ANAEMIA [None]
